FAERS Safety Report 10047468 (Version 1)
Quarter: 2014Q1

REPORT INFORMATION
  Report Type: Spontaneous
  Country: US (occurrence: None)
  Receive Date: 20140327
  Receipt Date: 20140327
  Transmission Date: 20141002
  Serious: Yes (Other)
  Sender: FDA-Public Use
  Company Number: 2014AP002278

PATIENT
  Age: 54 Year
  Sex: Female

DRUGS (3)
  1. PAROXETINE HCL [Suspect]
     Indication: ANTIDEPRESSANT THERAPY
     Dates: end: 20131110
  2. COPAXONE [Suspect]
     Indication: MULTIPLE SCLEROSIS
     Dates: start: 20131101
  3. AMITRIPTYLINE [Suspect]
     Indication: SEROTONIN SYNDROME
     Dates: start: 20140107

REACTIONS (13)
  - Urinary incontinence [None]
  - Serotonin syndrome [None]
  - Condition aggravated [None]
  - Multiple sclerosis relapse [None]
  - Hypoaesthesia [None]
  - Formication [None]
  - Vision blurred [None]
  - Pruritus [None]
  - Insomnia [None]
  - Feeling of body temperature change [None]
  - Tremor [None]
  - Pain in extremity [None]
  - Pollakiuria [None]
